FAERS Safety Report 13851819 (Version 1)
Quarter: 2017Q3

REPORT INFORMATION
  Report Type: Spontaneous
  Country: BR (occurrence: BR)
  Receive Date: 20170810
  Receipt Date: 20170810
  Transmission Date: 20171127
  Serious: Yes (Hospitalization, Other)
  Sender: FDA-Public Use
  Company Number: BR-009507513-1708BRA001438

PATIENT
  Sex: Female
  Weight: 84 kg

DRUGS (1)
  1. NUVARING [Suspect]
     Active Substance: ETHINYL ESTRADIOL\ETONOGESTREL
     Indication: CONTRACEPTION
     Dosage: 21 DAYS IN USE WITH 7 DAYS IN PAUSE
     Route: 067

REACTIONS (5)
  - Ectopic pregnancy [Recovered/Resolved]
  - Abortion of ectopic pregnancy [Recovered/Resolved]
  - Uterine rupture [Recovered/Resolved]
  - Maternal exposure before pregnancy [Recovered/Resolved]
  - Internal haemorrhage [Recovered/Resolved]

NARRATIVE: CASE EVENT DATE: 200909
